FAERS Safety Report 25872103 (Version 1)
Quarter: 2025Q4

REPORT INFORMATION
  Report Type: Report from Study
  Country: US (occurrence: US)
  Receive Date: 20251002
  Receipt Date: 20251002
  Transmission Date: 20260118
  Serious: Yes (Other)
  Sender: ABBVIE
  Company Number: US-ABBVIE-6483147

PATIENT
  Sex: Male

DRUGS (3)
  1. LUMIGAN [Suspect]
     Active Substance: BIMATOPROST
     Indication: Product used for unknown indication
     Route: 047
  2. LUMIGAN [Suspect]
     Active Substance: BIMATOPROST
     Route: 047
  3. LUMIGAN [Suspect]
     Active Substance: BIMATOPROST
     Route: 047

REACTIONS (2)
  - Cataract [Unknown]
  - Product packaging quantity issue [Unknown]
